FAERS Safety Report 6600994-X (Version None)
Quarter: 2010Q1

REPORT INFORMATION
  Report Type: 
  Country: None (occurrence: None)
  Receive Date: 20100225
  Receipt Date: 20100217
  Transmission Date: 20100710
  Serious: Yes (Other)
  Sender: FDA-Public Use
  Company Number: CA-JNJFOC-20090606671

PATIENT
  Sex: Male
  Weight: 66 kg

DRUGS (5)
  1. REMICADE [Suspect]
     Indication: CROHN'S DISEASE
     Dosage: TO PRESENT
     Route: 042
  2. REMICADE [Suspect]
     Dosage: 16TH INFUSION
     Route: 042
  3. REMICADE [Suspect]
     Indication: ANKYLOSING SPONDYLITIS
     Dosage: TO PRESENT
     Route: 042
  4. REMICADE [Suspect]
     Dosage: 16TH INFUSION
     Route: 042
  5. ACETAMINOPHEN [Concomitant]
     Indication: PREMEDICATION
     Route: 048

REACTIONS (1)
  - BARRETT'S OESOPHAGUS [None]
